FAERS Safety Report 10920727 (Version 1)
Quarter: 2015Q1

REPORT INFORMATION
  Report Type: Spontaneous
  Country: US (occurrence: None)
  Receive Date: 20150313
  Receipt Date: 20150313
  Transmission Date: 20150721
  Serious: Yes (Other)
  Sender: FDA-Public Use
  Company Number: None

PATIENT
  Age: 38 Year
  Sex: Female
  Weight: 62.6 kg

DRUGS (7)
  1. EXALGO [Suspect]
     Active Substance: HYDROMORPHONE HYDROCHLORIDE
     Indication: BACK PAIN
     Dosage: 1 PILL
     Route: 048
     Dates: start: 20150307, end: 20150312
  2. EXALGO [Suspect]
     Active Substance: HYDROMORPHONE HYDROCHLORIDE
     Dosage: 1 PILL
     Route: 048
     Dates: start: 20150307, end: 20150312
  3. POTASSIUM [Concomitant]
     Active Substance: POTASSIUM
  4. EXALGO [Suspect]
     Active Substance: HYDROMORPHONE HYDROCHLORIDE
     Indication: PAIN
     Dosage: 1 PILL
     Route: 048
     Dates: start: 20150307, end: 20150312
  5. AMBIEN [Concomitant]
     Active Substance: ZOLPIDEM TARTRATE
  6. XANAX [Concomitant]
     Active Substance: ALPRAZOLAM
  7. NEURONTIN 600MG [Concomitant]

REACTIONS (8)
  - Depression [None]
  - Dysuria [None]
  - Mental disorder [None]
  - Infrequent bowel movements [None]
  - Emotional disorder [None]
  - Weight decreased [None]
  - Abdominal pain upper [None]
  - Suicidal ideation [None]

NARRATIVE: CASE EVENT DATE: 20150307
